FAERS Safety Report 13765314 (Version 1)
Quarter: 2017Q3

REPORT INFORMATION
  Report Type: Spontaneous
  Country: US (occurrence: US)
  Receive Date: 20170718
  Receipt Date: 20170718
  Transmission Date: 20171127
  Serious: Yes (Other)
  Sender: FDA-Public Use
  Company Number: US-THE MENTHOLATUM COMPANY-2023451

PATIENT
  Age: 43 Year
  Sex: Female
  Weight: 90.91 kg

DRUGS (1)
  1. WELLPATCH CAPSAICIN PAIN RELIEF [Suspect]
     Active Substance: CAPSAICIN
     Route: 061
     Dates: start: 20170625, end: 20170625

REACTIONS (1)
  - Chemical burn of skin [Unknown]

NARRATIVE: CASE EVENT DATE: 20170625
